FAERS Safety Report 7614643-5 (Version None)
Quarter: 2011Q3

REPORT INFORMATION
  Report Type: 
  Country: None (occurrence: None)
  Receive Date: 20110708
  Receipt Date: 20110624
  Transmission Date: 20111222
  Serious: Yes (Other)
  Sender: FDA-Public Use
  Company Number: IMP_05392_2011

PATIENT
  Sex: Female
  Weight: 81.1031 kg

DRUGS (10)
  1. LEVOTHYROXINE SODIUM [Concomitant]
  2. HUMALOG [Concomitant]
  3. LANTUS [Concomitant]
  4. AUGMENTIN '125' [Concomitant]
  5. BLACKMORES VITAMIN C [Concomitant]
  6. AMOXICILLIN [Concomitant]
  7. CLARITIN-D [Suspect]
     Indication: NASOPHARYNGITIS
     Dosage: (DF ORAL)
     Route: 048
     Dates: start: 20110521, end: 20110524
  8. CLARITIN-D [Suspect]
     Indication: LACRIMATION INCREASED
     Dosage: (DF ORAL)
     Route: 048
     Dates: start: 20110521, end: 20110524
  9. CLARITIN-D [Suspect]
     Indication: RHINORRHOEA
     Dosage: (DF ORAL)
     Route: 048
     Dates: start: 20110521, end: 20110524
  10. CLARITIN-D [Suspect]
     Indication: NASAL CONGESTION
     Dosage: (DF ORAL)
     Route: 048
     Dates: start: 20110521, end: 20110524

REACTIONS (7)
  - DEPRESSED MOOD [None]
  - NAUSEA [None]
  - FEELING ABNORMAL [None]
  - SUICIDAL IDEATION [None]
  - THERAPEUTIC RESPONSE UNEXPECTED [None]
  - ANGER [None]
  - PRODUCT QUALITY ISSUE [None]
